FAERS Safety Report 7403274-8 (Version None)
Quarter: 2011Q2

REPORT INFORMATION
  Report Type: 
  Country: None (occurrence: None)
  Receive Date: 20110408
  Receipt Date: 20110404
  Transmission Date: 20111010
  Serious: Yes (Other)
  Sender: FDA-Public Use
  Company Number: FR-ABBOTT-11P-056-0716891-00

PATIENT
  Sex: Male

DRUGS (3)
  1. CORTANCYL [Concomitant]
     Indication: ANKYLOSING SPONDYLITIS
     Dosage: DAILY DOSE: 40 MG
     Dates: start: 20100301
  2. FELDENE [Concomitant]
     Indication: ANKYLOSING SPONDYLITIS
     Dates: end: 20110301
  3. HUMIRA [Suspect]
     Indication: ANKYLOSING SPONDYLITIS
     Route: 058
     Dates: start: 20101025, end: 20110124

REACTIONS (4)
  - RASH PUSTULAR [None]
  - PARAKERATOSIS [None]
  - PSORIASIS [None]
  - PUSTULAR PSORIASIS [None]
